FAERS Safety Report 21628714 (Version 1)
Quarter: 2022Q4

REPORT INFORMATION
  Report Type: Report from Study
  Country: US (occurrence: US)
  Receive Date: 20221122
  Receipt Date: 20221122
  Transmission Date: 20230113
  Serious: No
  Sender: FDA-Public Use
  Company Number: US-ABBVIE-22K-163-4485891-00

PATIENT
  Age: 36 Year
  Sex: Female

DRUGS (2)
  1. SKYRIZI [Suspect]
     Active Substance: RISANKIZUMAB-RZAA
     Indication: Psoriasis
     Dosage: INJECT ONE PEN UNDER SKIN AT WEEK 0, WEEK 4, THEN EVERY 12 WEEKS THEREAFTER.?FORM STRENGTH : 50 MG
     Route: 058
     Dates: start: 20220706
  2. SKYRIZI [Suspect]
     Active Substance: RISANKIZUMAB-RZAA
     Dosage: FORM STRENGTH : 150 MG
     Route: 058

REACTIONS (3)
  - Nasopharyngitis [Recovered/Resolved]
  - Injection site bruising [Recovering/Resolving]
  - Psoriasis [Unknown]

NARRATIVE: CASE EVENT DATE: 20220701
